FAERS Safety Report 24307889 (Version 1)
Quarter: 2024Q3

REPORT INFORMATION
  Report Type: Spontaneous
  Country: BE (occurrence: BE)
  Receive Date: 20240911
  Receipt Date: 20240911
  Transmission Date: 20241016
  Serious: Yes (Hospitalization, Other)
  Sender: PFIZER
  Company Number: BE-PFIZER INC-PV202400117327

PATIENT
  Age: 55 Year
  Sex: Male

DRUGS (2)
  1. TOFACITINIB CITRATE [Suspect]
     Active Substance: TOFACITINIB CITRATE
     Indication: Colitis ulcerative
     Dosage: UNK
     Dates: start: 202407
  2. TOFACITINIB CITRATE [Suspect]
     Active Substance: TOFACITINIB CITRATE
     Dosage: (10 MG BID (TWICE A DAY))
     Dates: start: 20240831

REACTIONS (2)
  - Pneumonia cytomegaloviral [Recovering/Resolving]
  - Interstitial lung disease [Recovering/Resolving]
